FAERS Safety Report 17392074 (Version 3)
Quarter: 2020Q1

REPORT INFORMATION
  Report Type: Spontaneous
  Country: DK (occurrence: DK)
  Receive Date: 20200207
  Receipt Date: 20200304
  Transmission Date: 20200409
  Serious: Yes (Life-Threatening, Hospitalization, Other)
  Sender: FDA-Public Use
  Company Number: DK-MYLANLABS-2020M1013561

PATIENT
  Age: 71 Year
  Sex: Female
  Weight: 60 kg

DRUGS (6)
  1. SIMVASTATIN. [Suspect]
     Active Substance: SIMVASTATIN
     Indication: BREAST CANCER METASTATIC
     Dosage: 40 MILLIGRAM, QD
     Route: 048
     Dates: start: 2007, end: 201712
  2. FULVESTRANT. [Concomitant]
     Active Substance: FULVESTRANT
     Indication: BREAST CANCER METASTATIC
     Dosage: ON DAY ONE AND 14 RECEIVING 1 CYCLE
     Route: 030
     Dates: start: 2017
  3. PALBOCICLIB [Interacting]
     Active Substance: PALBOCICLIB
     Indication: BREAST CANCER METASTATIC
     Dosage: PALBOCICLIB 125 MG DAILY FOR 21 DAYS
     Route: 048
     Dates: start: 201711, end: 201712
  4. TRAMADOL                           /00599202/ [Concomitant]
     Active Substance: TRAMADOL
     Indication: BACK PAIN
     Dosage: UNK
     Dates: start: 2017
  5. PALBOCICLIB [Interacting]
     Active Substance: PALBOCICLIB
     Indication: METASTASES TO BONE
     Dosage: UNK
  6. PARACETAMOL [Concomitant]
     Active Substance: ACETAMINOPHEN
     Indication: BACK PAIN
     Dosage: UNK
     Dates: start: 2017

REACTIONS (5)
  - Gait disturbance [Recovered/Resolved]
  - Wheelchair user [Recovered/Resolved]
  - Rhabdomyolysis [Recovered/Resolved]
  - Drug interaction [Recovered/Resolved]
  - Toxicity to various agents [Recovered/Resolved]

NARRATIVE: CASE EVENT DATE: 2017
